FAERS Safety Report 17916352 (Version 2)
Quarter: 2020Q2

REPORT INFORMATION
  Report Type: Report from Study
  Country: None (occurrence: BR)
  Receive Date: 20200619
  Receipt Date: 20200622
  Transmission Date: 20200714
  Serious: Yes (Other)
  Sender: FDA-Public Use
  Company Number: BR-ABBVIE-20P-020-3451095-00

PATIENT
  Sex: Male

DRUGS (4)
  1. OXCARBAZEPINE. [Concomitant]
     Active Substance: OXCARBAZEPINE
     Indication: ASTHENIA
  2. DEPAKOTE ER [Suspect]
     Active Substance: DIVALPROEX SODIUM
     Indication: PARTIAL SEIZURES
     Dosage: 2 TABLET AT 6:30 AND 18:30 TOGETHER WITH OXCARBAZEPINE. PRESCRIBED 2 TAB A DAY
     Route: 048
     Dates: start: 20191203
  3. DEPAKOTE ER [Suspect]
     Active Substance: DIVALPROEX SODIUM
     Indication: ASTHENIA
     Dosage: DOCTOR SAID THAT MEDICAL PRESCRIPTION IS WRITTEN 1 TABLET A DAY
     Route: 048
  4. OXCARBAZEPINE. [Concomitant]
     Active Substance: OXCARBAZEPINE
     Indication: PARTIAL SEIZURES
     Dosage: DAILY DOSE: 2 TABLETS TAKEN AT 6:30 AND 18:30

REACTIONS (8)
  - Product use issue [Unknown]
  - Inappropriate schedule of product administration [Unknown]
  - Product quality issue [Unknown]
  - Weight increased [Unknown]
  - Seizure [Recovered/Resolved]
  - Hyperventilation [Unknown]
  - Drug ineffective [Recovered/Resolved]
  - Therapeutic product effect incomplete [Unknown]
